FAERS Safety Report 25554314 (Version 1)
Quarter: 2025Q3

REPORT INFORMATION
  Report Type: Spontaneous
  Country: US (occurrence: None)
  Receive Date: 20250714
  Receipt Date: 20250714
  Transmission Date: 20251021
  Serious: No
  Sender: FDA-CTU
  Company Number: None

PATIENT
  Age: 41 Year
  Sex: Female
  Weight: 88.65 kg

DRUGS (7)
  1. RINVOQ [Suspect]
     Active Substance: UPADACITINIB
     Indication: Colitis ulcerative
     Dosage: 30 MG DAILY ORAL ?
     Route: 048
     Dates: start: 20240502
  2. SUMATRIPTAN [Concomitant]
     Active Substance: SUMATRIPTAN
  3. PANTOPRAZOLE [Concomitant]
     Active Substance: PANTOPRAZOLE
  4. PREDNISONE [Concomitant]
     Active Substance: PREDNISONE
  5. AJOVY [Concomitant]
     Active Substance: FREMANEZUMAB-VFRM
  6. UBRELVY [Concomitant]
     Active Substance: UBROGEPANT
  7. Tizanadine Tablets [Concomitant]

REACTIONS (1)
  - Genital herpes [None]

NARRATIVE: CASE EVENT DATE: 20250623
